FAERS Safety Report 22744479 (Version 6)
Quarter: 2023Q4

REPORT INFORMATION
  Report Type: Report from Study
  Country: JP (occurrence: JP)
  Receive Date: 20230724
  Receipt Date: 20231112
  Transmission Date: 20240109
  Serious: Yes (Other)
  Sender: FDA-Public Use
  Company Number: JP-002147023-NVSJ2023JP001865

PATIENT
  Age: 11 Year
  Sex: Female

DRUGS (24)
  1. ILARIS [Suspect]
     Active Substance: CANAKINUMAB
     Indication: Familial mediterranean fever
     Dosage: 150 MG
     Route: 058
     Dates: start: 20220413
  2. ILARIS [Suspect]
     Active Substance: CANAKINUMAB
     Dosage: 150 MG
     Route: 058
     Dates: start: 20220512
  3. ILARIS [Suspect]
     Active Substance: CANAKINUMAB
     Dosage: 150 MG
     Route: 058
     Dates: start: 20220609
  4. ILARIS [Suspect]
     Active Substance: CANAKINUMAB
     Dosage: 150 MG
     Route: 058
     Dates: start: 20220707
  5. ILARIS [Suspect]
     Active Substance: CANAKINUMAB
     Dosage: 150 MG
     Route: 058
     Dates: start: 20220804
  6. ILARIS [Suspect]
     Active Substance: CANAKINUMAB
     Dosage: 150 MG
     Route: 058
     Dates: start: 20220901
  7. ILARIS [Suspect]
     Active Substance: CANAKINUMAB
     Dosage: 150 MG
     Route: 058
     Dates: start: 20220929
  8. ILARIS [Suspect]
     Active Substance: CANAKINUMAB
     Dosage: 300 MG
     Route: 058
     Dates: start: 20221027
  9. ILARIS [Suspect]
     Active Substance: CANAKINUMAB
     Dosage: 300 MG
     Route: 058
     Dates: start: 20221124
  10. ILARIS [Suspect]
     Active Substance: CANAKINUMAB
     Dosage: 300 MG
     Route: 058
     Dates: start: 20221222
  11. ILARIS [Suspect]
     Active Substance: CANAKINUMAB
     Dosage: 300 MG
     Route: 058
     Dates: start: 20230119
  12. ILARIS [Suspect]
     Active Substance: CANAKINUMAB
     Dosage: 300 MG
     Route: 058
     Dates: start: 20230216
  13. ILARIS [Suspect]
     Active Substance: CANAKINUMAB
     Dosage: 300 MG
     Route: 058
     Dates: start: 20230316
  14. ILARIS [Suspect]
     Active Substance: CANAKINUMAB
     Dosage: 300 MG
     Route: 058
     Dates: start: 20230413
  15. ILARIS [Suspect]
     Active Substance: CANAKINUMAB
     Dosage: 300 MG
     Route: 058
     Dates: start: 20230511
  16. ILARIS [Suspect]
     Active Substance: CANAKINUMAB
     Dosage: 300 MG
     Route: 058
     Dates: start: 20230608
  17. ILARIS [Suspect]
     Active Substance: CANAKINUMAB
     Dosage: 300 MG
     Route: 058
     Dates: start: 20230706, end: 20230912
  18. COLCHICINE [Suspect]
     Active Substance: COLCHICINE
     Indication: Familial mediterranean fever
     Dosage: 2 MG
     Route: 048
     Dates: start: 201811, end: 20201125
  19. COLCHICINE [Suspect]
     Active Substance: COLCHICINE
     Dosage: 1 MG
     Route: 048
     Dates: start: 20201126, end: 20210624
  20. COLCHICINE [Suspect]
     Active Substance: COLCHICINE
     Dosage: 0.25 MG
     Route: 048
     Dates: start: 20210805, end: 20211124
  21. COLCHICINE [Suspect]
     Active Substance: COLCHICINE
     Dosage: 0.5 MG
     Route: 048
     Dates: start: 20211125, end: 20220223
  22. COLCHICINE [Suspect]
     Active Substance: COLCHICINE
     Dosage: 1 MG
     Route: 048
     Dates: start: 20220224, end: 20220414
  23. COLCHICINE [Suspect]
     Active Substance: COLCHICINE
     Dosage: 1 MG
     Route: 048
     Dates: start: 20220901, end: 20230119
  24. LEMBOREXANT [Concomitant]
     Active Substance: LEMBOREXANT
     Indication: Sleep disorder
     Dosage: 2.5 MG
     Route: 048

REACTIONS (5)
  - Hepatic function abnormal [Not Recovered/Not Resolved]
  - Liver function test increased [Not Recovered/Not Resolved]
  - Generalised tonic-clonic seizure [Unknown]
  - Malaise [Recovering/Resolving]
  - Headache [Recovering/Resolving]

NARRATIVE: CASE EVENT DATE: 20221027
